FAERS Safety Report 6671671-4 (Version None)
Quarter: 2010Q2

REPORT INFORMATION
  Report Type: 
  Country: None (occurrence: None)
  Receive Date: 20100406
  Receipt Date: 20100406
  Transmission Date: 20101027
  Serious: Yes (Hospitalization)
  Sender: FDA-Public Use
  Company Number: None

PATIENT
  Age: 42 Year
  Sex: Male
  Weight: 93 kg

DRUGS (3)
  1. TRAZODONE [Suspect]
     Indication: DEPRESSION
     Dosage: 2500 MG ONCE PO
     Route: 048
     Dates: start: 20100203
  2. TRAZODONE [Suspect]
     Indication: PAIN
     Dosage: 2500 MG ONCE PO
     Route: 048
     Dates: start: 20100203
  3. HYDROCODONE BITARTRATE AND ACETAMINOPHEN [Suspect]
     Dosage: 25 TAB ONCE PO
     Route: 048
     Dates: start: 20100203, end: 20100203

REACTIONS (2)
  - INTENTIONAL OVERDOSE [None]
  - SEDATION [None]
